FAERS Safety Report 6179891-2 (Version None)
Quarter: 2009Q2

REPORT INFORMATION
  Report Type: 
  Country: None (occurrence: None)
  Receive Date: 20090505
  Receipt Date: 20090224
  Transmission Date: 20091009
  Serious: No
  Sender: FDA-Public Use
  Company Number: US-TYCO HEALTHCARE/MALLINCKRODT-T200900574

PATIENT
  Sex: Male

DRUGS (4)
  1. OXYCODONE HCL EXTENDED-RELEASE [Suspect]
     Indication: MUSCULOSKELETAL PAIN
     Dosage: 40 MG, TID
     Dates: start: 20090217, end: 20090218
  2. OXYCODONE HCL EXTENDED-RELEASE [Suspect]
     Dosage: 80 MG, TID
     Dates: start: 20090218
  3. ROZEREM [Concomitant]
     Indication: INSOMNIA
     Dosage: UNK
  4. PROGRAF [Concomitant]
     Indication: LIVER TRANSPLANT
     Dosage: UNK

REACTIONS (2)
  - DRUG INEFFECTIVE [None]
  - INCORRECT DOSE ADMINISTERED [None]
